FAERS Safety Report 6991271-6 (Version None)
Quarter: 2010Q3

REPORT INFORMATION
  Report Type: 
  Country: None (occurrence: None)
  Receive Date: 20100916
  Receipt Date: 20081016
  Transmission Date: 20110219
  Serious: No
  Sender: FDA-Public Use
  Company Number: US-WYE-H06408508

PATIENT

DRUGS (1)
  1. PREMARIN [Suspect]
     Dosage: ^LOW DOSE^

REACTIONS (1)
  - OESTRONE INCREASED [None]
